FAERS Safety Report 15552728 (Version 1)
Quarter: 2018Q4

REPORT INFORMATION
  Report Type: Spontaneous
  Country: US (occurrence: US)
  Receive Date: 20181025
  Receipt Date: 20181025
  Transmission Date: 20190205
  Serious: No
  Sender: FDA-Public Use
  Company Number: US-BAUSCH-BL-2017-036173

PATIENT
  Age: 86 Year
  Sex: Female
  Weight: 54.48 kg

DRUGS (2)
  1. PROLENSA [Concomitant]
     Active Substance: BROMFENAC SODIUM
     Indication: POSTOPERATIVE CARE
     Route: 047
  2. LOTEMAX [Suspect]
     Active Substance: LOTEPREDNOL ETABONATE
     Indication: POSTOPERATIVE CARE
     Dosage: RIGHT EYE, THREE WEEKS AGO
     Route: 047
     Dates: start: 201712, end: 201712

REACTIONS (3)
  - Ocular discomfort [Recovered/Resolved]
  - Loss of personal independence in daily activities [Recovered/Resolved]
  - Eye pain [Recovered/Resolved]

NARRATIVE: CASE EVENT DATE: 201712
